FAERS Safety Report 12901493 (Version 1)
Quarter: 2016Q4

REPORT INFORMATION
  Report Type: Spontaneous
  Country: US (occurrence: US)
  Receive Date: 20161102
  Receipt Date: 20161102
  Transmission Date: 20170207
  Serious: No
  Sender: FDA-Public Use
  Company Number: US-TAIHO ONCOLOGY INC-EU-2016-02806

PATIENT
  Age: 78 Year
  Sex: Male

DRUGS (11)
  1. LONSURF [Suspect]
     Active Substance: TIPIRACIL HYDROCHLORIDE\TRIFLURIDINE
     Indication: COLON CANCER
     Route: 048
     Dates: start: 20160902
  2. ELIQUIS [Concomitant]
     Active Substance: APIXABAN
     Dosage: NI
  3. POTASSIUM [Concomitant]
     Active Substance: POTASSIUM
     Dosage: NI
  4. BUSPIRONE [Concomitant]
     Active Substance: BUSPIRONE HYDROCHLORIDE
     Dosage: NI
  5. CELEXA [Concomitant]
     Active Substance: CITALOPRAM HYDROBROMIDE
     Dosage: NI
  6. PREDNISONE. [Concomitant]
     Active Substance: PREDNISONE
     Dosage: NI
  7. COLCHICINE. [Concomitant]
     Active Substance: COLCHICINE
     Dosage: NI
  8. SIMVASTATIN. [Concomitant]
     Active Substance: SIMVASTATIN
     Dosage: NI
  9. XANAX [Concomitant]
     Active Substance: ALPRAZOLAM
     Dosage: NI
  10. MAGNESIUM [Concomitant]
     Active Substance: MAGNESIUM
     Dosage: NI
  11. ATROPINE SULFATE/DIPHENOXYLATE HYDROCHLORIDE [Concomitant]
     Dosage: NI

REACTIONS (2)
  - Diarrhoea [Unknown]
  - Headache [Unknown]

NARRATIVE: CASE EVENT DATE: 201610
